FAERS Safety Report 17527789 (Version 1)
Quarter: 2020Q1

REPORT INFORMATION
  Report Type: Report from Study
  Country: AU (occurrence: AU)
  Receive Date: 20200311
  Receipt Date: 20200311
  Transmission Date: 20200409
  Serious: Yes (Other)
  Sender: FDA-Public Use
  Company Number: AU-VERTEX PHARMACEUTICALS-2020-004686

PATIENT
  Sex: Female
  Weight: 45 kg

DRUGS (2)
  1. ELEXACAFTOR/TEZACAFTOR/IVACAFTOR AND IVACAFTOR [Suspect]
     Active Substance: ELEXACAFTOR\IVACAFTOR\TEZACAFTOR
     Indication: CYSTIC FIBROSIS
     Dosage: (100MG ELEXACAFTOR/50 MG TEZACAFTOR/75MG IVACAFTOR; 150MG IVACAFTOR)
     Route: 048
     Dates: start: 20191212
  2. QUETIAPINE. [Concomitant]
     Active Substance: QUETIAPINE
     Indication: SLEEP DISORDER
     Dosage: 25 MILLIGRAM AT NIGHT
     Dates: start: 20200226

REACTIONS (1)
  - Hypomania [Not Recovered/Not Resolved]

NARRATIVE: CASE EVENT DATE: 2020
